FAERS Safety Report 6621759-9 (Version None)
Quarter: 2010Q1

REPORT INFORMATION
  Report Type: 
  Country: None (occurrence: None)
  Receive Date: 20100223
  Receipt Date: 20100105
  Transmission Date: 20100710
  Serious: No
  Sender: FDA-Public Use
  Company Number: 003999

PATIENT
  Sex: Female

DRUGS (1)
  1. CIMZIA [Suspect]
     Dates: start: 20100105

REACTIONS (1)
  - INCORRECT ROUTE OF DRUG ADMINISTRATION [None]
